FAERS Safety Report 10219666 (Version 1)
Quarter: 2014Q2

REPORT INFORMATION
  Report Type: Spontaneous
  Country: US (occurrence: None)
  Receive Date: 20140604
  Receipt Date: 20140604
  Transmission Date: 20141212
  Serious: Yes (Hospitalization)
  Sender: FDA-Public Use
  Company Number: None

PATIENT
  Age: 79 Year
  Sex: Female

DRUGS (1)
  1. TAFINLAR [Suspect]
     Indication: MALIGNANT MELANOMA
     Route: 048
     Dates: start: 20131112

REACTIONS (2)
  - Pyrexia [None]
  - Adverse event [None]
